FAERS Safety Report 7245958-0 (Version None)
Quarter: 2011Q1

REPORT INFORMATION
  Report Type: 
  Country: None (occurrence: None)
  Receive Date: 20110126
  Receipt Date: 20101217
  Transmission Date: 20110831
  Serious: Yes (Hospitalization)
  Sender: FDA-Public Use
  Company Number: US-BAYER-201023176NA

PATIENT
  Sex: Female
  Weight: 100 kg

DRUGS (24)
  1. PROZAC [Concomitant]
     Route: 048
  2. PROZAC [Concomitant]
  3. AMBIEN [Concomitant]
     Dates: start: 20090101
  4. FIORICET [Concomitant]
     Route: 048
     Dates: end: 20080615
  5. YASMIN [Suspect]
     Indication: CONTRACEPTION
     Route: 048
     Dates: end: 20040615
  6. MOTRIN [Concomitant]
     Dates: start: 19860101
  7. YASMIN [Suspect]
     Route: 048
     Dates: start: 20050101, end: 20090101
  8. AMBIEN [Concomitant]
     Dosage: 10 1 QD
     Dates: end: 20080615
  9. ALEVE-D SINUS + COLD [Concomitant]
     Dates: start: 20080101
  10. PREVACID [Concomitant]
     Route: 048
  11. PHENERGAN [Concomitant]
     Dosage: 1 PO Q6
     Route: 048
  12. UNCODEABLE ^UNCLASSIFIABLE^ [Concomitant]
  13. PROZAC [Concomitant]
     Indication: MENTAL DISORDER
     Route: 048
  14. LUNESTA [Concomitant]
     Dosage: 20 MG QHS
  15. OCELLA [Suspect]
     Indication: CONTRACEPTION
     Route: 048
     Dates: start: 20081201, end: 20090115
  16. CHOLESTYRAMINE [Concomitant]
  17. LASIX [Concomitant]
  18. YAZ [Suspect]
     Indication: CONTRACEPTION
     Route: 048
     Dates: end: 20090215
  19. ZANTAC [Concomitant]
     Route: 048
  20. PROZAC [Concomitant]
     Route: 048
  21. NEXIUM [Concomitant]
     Route: 048
  22. ADVIL [Concomitant]
     Dates: start: 19860101
  23. CIPRO [Concomitant]
     Dates: start: 20081017
  24. UNCODEABLE ^UNCLASSIFIABLE^ [Concomitant]

REACTIONS (12)
  - GALLBLADDER DISORDER [None]
  - VOMITING [None]
  - DIARRHOEA HAEMORRHAGIC [None]
  - ABDOMINAL DISTENSION [None]
  - PROCEDURAL PAIN [None]
  - ABDOMINAL PAIN [None]
  - APHAGIA [None]
  - POST PROCEDURAL DIARRHOEA [None]
  - NAUSEA [None]
  - ABDOMINAL TENDERNESS [None]
  - PANCREATITIS [None]
  - GASTRIC PH DECREASED [None]
